FAERS Safety Report 5671604-3 (Version None)
Quarter: 2008Q1

REPORT INFORMATION
  Report Type: 
  Country: None (occurrence: None)
  Receive Date: 20080313
  Receipt Date: 20080226
  Transmission Date: 20080703
  Serious: Yes (Hospitalization)
  Sender: FDA-Public Use
  Company Number: ENTC2008-0055

PATIENT
  Age: 74 Year
  Sex: Male

DRUGS (9)
  1. STALEVO 100 [Suspect]
     Indication: PARKINSON'S DISEASE
     Dosage: 2 TABS (150/37.5/200MG) A DAY; 2 TABS (100/25/200MG) A DAY
     Route: 048
     Dates: start: 20060701, end: 20080101
  2. STALEVO 100 [Suspect]
     Indication: PARKINSON'S DISEASE
     Dosage: 2 TABS (150/37.5/200MG) A DAY; 2 TABS (100/25/200MG) A DAY
     Route: 048
     Dates: start: 20080101
  3. BROMOCRIPTINE MESYLATE [Concomitant]
  4. PRAMIPEXOLE DIHYDROCHLORIDE [Concomitant]
  5. ENALAPRIL MALEATE [Concomitant]
  6. CLONAZEPAM [Concomitant]
  7. OLANZAPINE [Concomitant]
  8. SERTRALINE [Concomitant]
  9. TABOR [Concomitant]

REACTIONS (2)
  - HALLUCINATION [None]
  - HEMIPLEGIA [None]
